FAERS Safety Report 12846886 (Version 1)
Quarter: 2016Q4

REPORT INFORMATION
  Report Type: Report from Study
  Country: GB (occurrence: GB)
  Receive Date: 20161014
  Receipt Date: 20161014
  Transmission Date: 20170207
  Serious: Yes (Other)
  Sender: FDA-Public Use
  Company Number: GB-ASTELLAS-2011EU007921

PATIENT
  Weight: 1 kg

DRUGS (6)
  1. AZATHIOPRINE. [Concomitant]
     Active Substance: AZATHIOPRINE
     Indication: EXPOSURE DURING BREAST FEEDING
     Dosage: UNK UNK, UNKNOWN FREQ.
     Route: 063
  2. TACROLIMUS. [Suspect]
     Active Substance: TACROLIMUS
     Indication: EXPOSURE DURING BREAST FEEDING
     Dosage: UNK UNK, UNKNOWN FREQ.
     Route: 063
  3. HYDROXYCHLOROQUINE [Concomitant]
     Active Substance: HYDROXYCHLOROQUINE
     Indication: FOETAL EXPOSURE DURING PREGNANCY
     Dosage: UNK UNK, UNKNOWN FREQ.
     Route: 064
  4. HYDROXYCHLOROQUINE [Concomitant]
     Active Substance: HYDROXYCHLOROQUINE
     Indication: EXPOSURE DURING BREAST FEEDING
     Dosage: UNK UNK, UNKNOWN FREQ.
     Route: 063
  5. TACROLIMUS. [Suspect]
     Active Substance: TACROLIMUS
     Indication: FOETAL EXPOSURE DURING PREGNANCY
     Dosage: UNK UNK, UNKNOWN FREQ.
     Route: 064
  6. AZATHIOPRINE. [Concomitant]
     Active Substance: AZATHIOPRINE
     Indication: FOETAL EXPOSURE DURING PREGNANCY
     Dosage: UNK UNK, UNKNOWN FREQ.
     Route: 064

REACTIONS (3)
  - Exposure during breast feeding [Unknown]
  - Low birth weight baby [Unknown]
  - Premature baby [Unknown]
